FAERS Safety Report 6219646-3 (Version None)
Quarter: 2009Q2

REPORT INFORMATION
  Report Type: 
  Country: None (occurrence: None)
  Receive Date: 20090609
  Receipt Date: 20090601
  Transmission Date: 20091009
  Serious: Yes (Other)
  Sender: FDA-Public Use
  Company Number: US-AVENTIS-200914769US

PATIENT
  Sex: Female
  Weight: 70.45 kg

DRUGS (6)
  1. LOVENOX [Suspect]
     Indication: FALL
     Dates: start: 20090501
  2. LOVENOX [Suspect]
     Indication: KNEE OPERATION
     Dates: start: 20090501
  3. CARDIOVASCULAR SYSTEM DRUGS [Concomitant]
     Indication: HYPERTENSION
     Dosage: DOSE: UNK
  4. TEGRETOL [Concomitant]
     Dosage: DOSE: UNK
  5. THYROID PREPARATIONS [Concomitant]
     Indication: THYROID DISORDER
     Dosage: DOSE: UNK
  6. UNKNOWN DRUG [Concomitant]
     Dosage: DOSE: UNK

REACTIONS (3)
  - BLOOD PRESSURE INCREASED [None]
  - INJECTION SITE HAEMATOMA [None]
  - INJECTION SITE PAIN [None]
